FAERS Safety Report 6228896-1 (Version None)
Quarter: 2009Q2

REPORT INFORMATION
  Report Type: 
  Country: None (occurrence: None)
  Receive Date: 20090615
  Receipt Date: 20090612
  Transmission Date: 20091009
  Serious: Yes (Hospitalization)
  Sender: FDA-Public Use
  Company Number: GB-ROCHE-633913

PATIENT
  Sex: Female
  Weight: 117 kg

DRUGS (5)
  1. ORLISTAT [Suspect]
     Indication: OBESITY
     Route: 048
     Dates: start: 20081029, end: 20090406
  2. MEFENAMIC ACID [Concomitant]
     Indication: MENORRHAGIA
     Route: 048
     Dates: start: 20090209
  3. HYOSCINE NOS [Concomitant]
     Indication: ABDOMINAL PAIN
     Route: 048
     Dates: start: 20090401, end: 20090406
  4. ACETAMINOPHEN W/ CODEINE [Concomitant]
     Indication: ABDOMINAL PAIN
     Dosage: STRENGTH REPORTED AS 30/500
     Route: 048
     Dates: start: 20090401, end: 20090406
  5. TRIMETHOPRIM [Concomitant]
     Route: 048
     Dates: start: 20090401, end: 20090406

REACTIONS (2)
  - CHOLELITHIASIS [None]
  - PANCREATITIS [None]
